FAERS Safety Report 23705904 (Version 1)
Quarter: 2024Q2

REPORT INFORMATION
  Report Type: Spontaneous
  Country: US (occurrence: None)
  Receive Date: 20240403
  Receipt Date: 20240403
  Transmission Date: 20240716
  Serious: No
  Sender: FDA-Public Use
  Company Number: None

PATIENT
  Age: 23 Year
  Sex: Female
  Weight: 70.65 kg

DRUGS (7)
  1. EMGALITY [Suspect]
     Active Substance: GALCANEZUMAB-GNLM
     Indication: Migraine
     Dates: start: 20240402
  2. TOPIRAMATE [Concomitant]
     Active Substance: TOPIRAMATE
  3. ETHINYL ESTRADIOL\NORETHINDRONE ACETATE [Concomitant]
     Active Substance: ETHINYL ESTRADIOL\NORETHINDRONE ACETATE
  4. emgality [Concomitant]
  5. DULOXETINE [Concomitant]
     Active Substance: DULOXETINE
  6. multivitamin [Concomitant]
  7. probiotic [Concomitant]

REACTIONS (5)
  - Product temperature excursion issue [None]
  - Injection site reaction [None]
  - Product substitution issue [None]
  - Injection site pruritus [None]
  - Injection site swelling [None]

NARRATIVE: CASE EVENT DATE: 20240403
